FAERS Safety Report 8535137-9 (Version None)
Quarter: 2012Q3

REPORT INFORMATION
  Report Type: 
  Country: None (occurrence: None)
  Receive Date: 20120724
  Receipt Date: 20070615
  Transmission Date: 20120928
  Serious: Yes (Other)
  Sender: FDA-Public Use
  Company Number: CO-PFIZER INC-2012177719

PATIENT
  Age: 62 Year
  Sex: Male

DRUGS (6)
  1. GLIBENCLAMIDE [Concomitant]
     Dosage: 5 MG EVERY 24 HOURS
  2. LIPITOR [Suspect]
     Indication: DYSLIPIDAEMIA
     Dosage: 10 MG EVERY 24 HOURS
  3. QUINAPRIL AND HYDROCHLOROTHIAZIDE [Suspect]
     Indication: HYPERTENSION
     Dosage: [QUINAPRIL HCL 20 MG]/ [HYDROCHLOROTHIAZIDE 12.5 MG] EVERY 24 HOURS
  4. METFORMIN [Concomitant]
     Dosage: 850 MG EVERY 12 HOURS
  5. NORVASC [Suspect]
     Indication: HYPERTENSION
     Dosage: 10 MG EVERY 24 HOURS
  6. METOPROLOL TARTRATE [Concomitant]
     Dosage: 50 MG EVERY 12 HOURS

REACTIONS (1)
  - HYPERTENSIVE EMERGENCY [None]
